FAERS Safety Report 4967188-5 (Version None)
Quarter: 2006Q2

REPORT INFORMATION
  Report Type: 
  Country: None (occurrence: None)
  Receive Date: 20060410
  Receipt Date: 20060404
  Transmission Date: 20061013
  Serious: Yes (Life-Threatening)
  Sender: FDA-Public Use
  Company Number: 2006AC00667

PATIENT
  Age: 92 Year
  Sex: Female

DRUGS (3)
  1. QUETIAPINE FUMARATE [Suspect]
     Indication: AGITATION
     Route: 048
  2. QUETIAPINE FUMARATE [Suspect]
     Indication: DELIRIUM
     Route: 048
  3. ANTIBIOTICS [Concomitant]
     Indication: PNEUMONIA

REACTIONS (2)
  - ACUTE RESPIRATORY FAILURE [None]
  - DEPRESSED LEVEL OF CONSCIOUSNESS [None]
